FAERS Safety Report 15823884 (Version 1)
Quarter: 2019Q1

REPORT INFORMATION
  Report Type: Spontaneous
  Country: US (occurrence: US)
  Receive Date: 20190114
  Receipt Date: 20190114
  Transmission Date: 20190417
  Serious: Yes (Other)
  Sender: FDA-Public Use
  Company Number: US-THE MENTHOLATUM COMPANY-2061173

PATIENT
  Age: 48 Year
  Sex: Female
  Weight: 77.27 kg

DRUGS (1)
  1. RED CROSS TOOTHACHE [Suspect]
     Active Substance: EUGENOL
     Indication: TOOTHACHE
     Route: 004
     Dates: start: 20190102, end: 20190102

REACTIONS (1)
  - Hypoaesthesia oral [Unknown]

NARRATIVE: CASE EVENT DATE: 20190102
